FAERS Safety Report 4883077-9 (Version None)
Quarter: 2006Q1

REPORT INFORMATION
  Report Type: 
  Country: None (occurrence: None)
  Receive Date: 20060113
  Receipt Date: 20051222
  Transmission Date: 20060701
  Serious: Yes (Death, Other)
  Sender: FDA-Public Use
  Company Number: GB200601000315

PATIENT
  Age: 45 Year
  Sex: Female

DRUGS (1)
  1. SOMATROPIN (SOMATROPIN UNKNOWN FORMULATION) UNKNOWN [Suspect]
     Dosage: UNK
     Route: 065

REACTIONS (5)
  - ACUTE PULMONARY OEDEMA [None]
  - EMPTY SELLA SYNDROME [None]
  - GERM CELL CANCER [None]
  - RECURRENT CANCER [None]
  - TACHYARRHYTHMIA [None]
